FAERS Safety Report 19609917 (Version 1)
Quarter: 2021Q3

REPORT INFORMATION
  Report Type: Report from Study
  Country: BR (occurrence: BR)
  Receive Date: 20210726
  Receipt Date: 20210726
  Transmission Date: 20211014
  Serious: Yes (Other)
  Sender: FDA-Public Use
  Company Number: NVSC2021BR163275

PATIENT
  Sex: Female

DRUGS (3)
  1. GALVUS MET [Suspect]
     Active Substance: METFORMIN HYDROCHLORIDE\VILDAGLIPTIN
     Indication: PRODUCT USED FOR UNKNOWN INDICATION
     Dosage: UNK UNK, BID,(A DAY, MORNING AFTER BREAKFAST ANOTHER AT NIGHT)
     Route: 065
  2. INSULIN [Concomitant]
     Active Substance: INSULIN NOS
     Indication: PRODUCT USED FOR UNKNOWN INDICATION
     Dosage: UNK
     Route: 065
  3. GALVUS [Suspect]
     Active Substance: VILDAGLIPTIN
     Indication: PRODUCT USED FOR UNKNOWN INDICATION
     Dosage: 50 MG
     Route: 065

REACTIONS (13)
  - Osteoporosis [Unknown]
  - Asthenia [Unknown]
  - Movement disorder [Unknown]
  - Bone fissure [Unknown]
  - Drug ineffective [Unknown]
  - Fall [Recovered/Resolved with Sequelae]
  - Gait disturbance [Unknown]
  - Limb discomfort [Unknown]
  - Nervousness [Unknown]
  - Malaise [Unknown]
  - Needle issue [Unknown]
  - Weight decreased [Unknown]
  - Head discomfort [Unknown]
